FAERS Safety Report 10476172 (Version 1)
Quarter: 2014Q3

REPORT INFORMATION
  Report Type: Spontaneous
  Country: US (occurrence: None)
  Receive Date: 20140923
  Receipt Date: 20140923
  Transmission Date: 20150326
  Serious: Yes (Other)
  Sender: FDA-Public Use
  Company Number: C14 062 AE

PATIENT
  Age: 7 Month
  Sex: Male
  Weight: 6.58 kg

DRUGS (1)
  1. FIRST LANSOPRAZOLE RX [Suspect]
     Active Substance: LANSOPRAZOLE
     Indication: GASTROOESOPHAGEAL REFLUX DISEASE
     Dosage: 5 ML ONCE DAILY ORALLY
     Route: 048
     Dates: start: 20140825, end: 20140906

REACTIONS (3)
  - Nausea [None]
  - Retching [None]
  - Headache [None]

NARRATIVE: CASE EVENT DATE: 20140906
